FAERS Safety Report 8598248-8 (Version None)
Quarter: 2012Q3

REPORT INFORMATION
  Report Type: 
  Country: None (occurrence: None)
  Receive Date: 20120816
  Receipt Date: 20120813
  Transmission Date: 20120928
  Serious: Yes (Death)
  Sender: FDA-Public Use
  Company Number: AU-B.I. PHARMACEUTICALS,INC./RIDGEFIELD-2012-AU-01342AU

PATIENT
  Sex: Male
  Weight: 111 kg

DRUGS (7)
  1. IRBESARTAN + HYDROCHLOROTHIAZIDE [Concomitant]
  2. LOPID [Concomitant]
  3. DIAMICRON [Concomitant]
  4. CARVEDILOL [Concomitant]
  5. LANOXIN [Concomitant]
  6. PRADAXA [Suspect]
     Dosage: 300 MG
  7. METFORMIN HCL [Concomitant]

REACTIONS (2)
  - MEDICATION ERROR [None]
  - ARRHYTHMIA [None]
